FAERS Safety Report 24205819 (Version 1)
Quarter: 2024Q3

REPORT INFORMATION
  Report Type: Report from Study
  Country: PR (occurrence: PR)
  Receive Date: 20240813
  Receipt Date: 20240813
  Transmission Date: 20241017
  Serious: Yes (Death)
  Sender: ABBVIE
  Company Number: PR-ABBVIE-5877225

PATIENT
  Age: 76 Year
  Sex: Female

DRUGS (1)
  1. HUMIRA [Suspect]
     Active Substance: ADALIMUMAB
     Indication: Rheumatoid arthritis
     Dosage: 40MG/0.8ML, FORM STRENGTH: 40 MILLIGRAM
     Route: 058
     Dates: start: 2013

REACTIONS (2)
  - Respiratory failure [Fatal]
  - COVID-19 [Fatal]

NARRATIVE: CASE EVENT DATE: 20240501
